FAERS Safety Report 10094913 (Version 1)
Quarter: 2014Q2

REPORT INFORMATION
  Report Type: Spontaneous
  Country: IT (occurrence: IT)
  Receive Date: 20140422
  Receipt Date: 20140422
  Transmission Date: 20141212
  Serious: Yes (Other)
  Sender: FDA-Public Use
  Company Number: IT-TAKEDA-2014TUS003079

PATIENT
  Age: 78 Year
  Sex: Male

DRUGS (8)
  1. FEBUXOSTAT [Suspect]
     Indication: HYPERURICAEMIA
     Dosage: 80 MG, BID
  2. FOSINOPRIL HCT [Concomitant]
     Indication: ATRIAL FIBRILLATION
     Dosage: 20/12.5 MG
  3. TORASEMIDE [Concomitant]
     Indication: ATRIAL FIBRILLATION
     Dosage: 10 MG, UNK
  4. BARNIDIPINE [Concomitant]
     Indication: ATRIAL FIBRILLATION
     Dosage: 10 MG, UNK
  5. SIMVASTATIN [Concomitant]
     Indication: ATRIAL FIBRILLATION
     Dosage: 40 MG, UNK
  6. METOPROLOL [Concomitant]
     Indication: ATRIAL FIBRILLATION
     Dosage: 100 MG, UNK
  7. ISOSORBIDE MONONITRATE [Concomitant]
     Indication: ATRIAL FIBRILLATION
     Dosage: 80 MG, UNK
  8. ACENOCOUMAROL [Concomitant]
     Indication: ATRIAL FIBRILLATION
     Dosage: 4 MG, UNK

REACTIONS (1)
  - Interstitial granulomatous dermatitis [Recovered/Resolved]
